FAERS Safety Report 25015878 (Version 1)
Quarter: 2025Q1

REPORT INFORMATION
  Report Type: Spontaneous
  Country: US (occurrence: US)
  Receive Date: 20250227
  Receipt Date: 20250227
  Transmission Date: 20250409
  Serious: No
  Sender: AMNEAL
  Company Number: US-AMNEAL PHARMACEUTICALS-2025-AMRX-00031

PATIENT
  Sex: Male

DRUGS (1)
  1. CREXONT [Suspect]
     Active Substance: CARBIDOPA\LEVODOPA
     Indication: Parkinson^s disease
     Dosage: (70/280 MG) 2 CAPSULES, QID
     Route: 048

REACTIONS (2)
  - Mobility decreased [Recovering/Resolving]
  - Muscle spasms [Recovering/Resolving]
